FAERS Safety Report 7545133-6 (Version None)
Quarter: 2011Q2

REPORT INFORMATION
  Report Type: 
  Country: None (occurrence: None)
  Receive Date: 20110525
  Receipt Date: 20110131
  Transmission Date: 20111010
  Serious: No
  Sender: FDA-Public Use
  Company Number: 322572

PATIENT
  Age: 61 Year
  Sex: Male

DRUGS (6)
  1. DIOVAN [Concomitant]
  2. ALLOPURINOL [Concomitant]
  3. AMARYL [Concomitant]
  4. GLUCOPHAGE [Concomitant]
  5. VICTOZA [Suspect]
     Indication: TYPE 2 DIABETES MELLITUS
     Dosage: 1.8 MG, QD IN THE MORNING, SUBCUTANEOUS
     Route: 058
  6. HUMALOG [Concomitant]

REACTIONS (4)
  - DECREASED APPETITE [None]
  - ERUCTATION [None]
  - NAUSEA [None]
  - BLOOD GLUCOSE INCREASED [None]
